FAERS Safety Report 12664755 (Version 1)
Quarter: 2016Q3

REPORT INFORMATION
  Report Type: Spontaneous
  Country: ES (occurrence: ES)
  Receive Date: 20160818
  Receipt Date: 20160818
  Transmission Date: 20161109
  Serious: Yes (Other)
  Sender: FDA-Public Use
  Company Number: ES-BAYER-2016-159099

PATIENT
  Age: 43 Year

DRUGS (7)
  1. MELOXICAM. [Concomitant]
     Active Substance: MELOXICAM
  2. CELECOXIB. [Concomitant]
     Active Substance: CELECOXIB
  3. PARACETAMOL [Concomitant]
     Active Substance: ACETAMINOPHEN
  4. DICLOFENAC [Concomitant]
     Active Substance: DICLOFENAC
  5. ACETYLSALICYLIC ACID (} 100 MG) [Suspect]
     Active Substance: ASPIRIN
     Indication: SKIN TEST
     Dosage: UNK
  6. ETORICOXIB [Suspect]
     Active Substance: ETORICOXIB
     Indication: ALLERGY TEST
  7. IBUPROFEN. [Concomitant]
     Active Substance: IBUPROFEN

REACTIONS (11)
  - Hypotension [None]
  - Eye pruritus [None]
  - Pruritus [None]
  - Nausea [None]
  - Lip pruritus [None]
  - Drug cross-reactivity [None]
  - Tongue oedema [None]
  - Lip oedema [None]
  - Sensation of foreign body [None]
  - Tongue pruritus [None]
  - Drug hypersensitivity [None]
